FAERS Safety Report 6215709-7 (Version None)
Quarter: 2009Q2

REPORT INFORMATION
  Report Type: 
  Country: None (occurrence: None)
  Receive Date: 20090605
  Receipt Date: 20090526
  Transmission Date: 20091009
  Serious: Yes (Other)
  Sender: FDA-Public Use
  Company Number: FR-BAYER-200922107GPV

PATIENT
  Age: 75 Year
  Sex: Male

DRUGS (3)
  1. CHRONADALATE [Suspect]
     Indication: HYPERTENSION
     Route: 048
     Dates: start: 19980101, end: 20070101
  2. EXFORGE [Suspect]
     Indication: HYPERTENSION
     Dosage: 5 MG / 160 MG
     Route: 048
     Dates: start: 20070201
  3. MECIR [Suspect]
     Indication: BENIGN PROSTATIC HYPERPLASIA
     Route: 048
     Dates: start: 20070201

REACTIONS (1)
  - TENDON RUPTURE [None]
